FAERS Safety Report 9845909 (Version 1)
Quarter: 2014Q1

REPORT INFORMATION
  Report Type: Spontaneous
  Country: US (occurrence: US)
  Receive Date: 20140127
  Receipt Date: 20140127
  Transmission Date: 20141002
  Serious: No
  Sender: FDA-Public Use
  Company Number: US-PFIZER INC-2014024646

PATIENT
  Age: 78 Year
  Sex: Female
  Weight: 72.56 kg

DRUGS (2)
  1. LYRICA [Suspect]
     Indication: NEUROPATHY PERIPHERAL
     Dosage: 75 MG, 3X/DAY
     Dates: start: 201311
  2. PRILOSEC [Concomitant]
     Indication: ABDOMINAL DISCOMFORT
     Dosage: 20 MG, DAILY

REACTIONS (1)
  - Weight increased [Unknown]
